FAERS Safety Report 16085072 (Version 1)
Quarter: 2019Q2

REPORT INFORMATION
  Report Type: Spontaneous
  Country: US (occurrence: US)
  Receive Date: 20190318
  Receipt Date: 20190318
  Transmission Date: 20190711
  Serious: Yes (Life-Threatening, Hospitalization, Other)
  Sender: FDA-Public Use
  Company Number: None

PATIENT
  Age: 7 Year
  Sex: Male
  Weight: 42.75 kg

DRUGS (1)
  1. TAMIFLU [Suspect]
     Active Substance: OSELTAMIVIR PHOSPHATE
     Indication: INFLUENZA
     Route: 048
     Dates: start: 20190317, end: 20190317

REACTIONS (11)
  - Confusional state [None]
  - Lip swelling [None]
  - Sluggishness [None]
  - Slow response to stimuli [None]
  - Vomiting [None]
  - Feeling abnormal [None]
  - Somnolence [None]
  - Incontinence [None]
  - Mental disorder [None]
  - Swelling face [None]
  - Screaming [None]

NARRATIVE: CASE EVENT DATE: 20190318
